FAERS Safety Report 8610571-7 (Version None)
Quarter: 2012Q3

REPORT INFORMATION
  Report Type: 
  Country: None (occurrence: None)
  Receive Date: 20120423
  Receipt Date: 20100422
  Transmission Date: 20120928
  Serious: Yes (Other)
  Sender: FDA-Public Use
  Company Number: PHHY2010US26973

PATIENT
  Sex: Female

DRUGS (9)
  1. ZETIA [Concomitant]
  2. CELEBREX [Concomitant]
  3. FOSAMAX [Concomitant]
  4. FEMARA [Suspect]
     Dosage: 2.5 MG
  5. WELLBUTRIN XL [Concomitant]
  6. SINGULAIR [Concomitant]
  7. LAVAZA [Concomitant]
  8. TAMOXIFEN CITRATE [Suspect]
  9. RESTASIS [Concomitant]

REACTIONS (4)
  - ARTHRALGIA [None]
  - JOINT SWELLING [None]
  - JOINT WARMTH [None]
  - OSTEOARTHRITIS [None]
